FAERS Safety Report 9431250 (Version 4)
Quarter: 2014Q2

REPORT INFORMATION
  Report Type: Spontaneous
  Country: US (occurrence: US)
  Receive Date: 20130730
  Receipt Date: 20140619
  Transmission Date: 20141212
  Serious: Yes (Hospitalization, Other)
  Sender: FDA-Public Use
  Company Number: US-MERCK-1307USA015155

PATIENT
  Sex: Female
  Weight: 69.84 kg

DRUGS (5)
  1. FOSAMAX [Suspect]
     Indication: OSTEOPOROSIS
     Dosage: 70 MG, UNK
     Route: 048
     Dates: start: 20060318, end: 20080915
  2. FOSAMAX [Suspect]
     Dosage: 70 MG, UNK
     Route: 048
     Dates: start: 20100804
  3. ALENDRONATE SODIUM [Suspect]
     Indication: OSTEOPOROSIS
     Dosage: 70 MG, UNK
     Dates: start: 20081231, end: 20100605
  4. ACTONEL [Suspect]
     Indication: OSTEOPOROSIS
     Dosage: 35 MG, UNK
     Dates: start: 20041207, end: 20051210
  5. RITALIN [Concomitant]
     Indication: NARCOLEPSY
     Dosage: UNK
     Dates: start: 1959

REACTIONS (43)
  - Femur fracture [Unknown]
  - Intramedullary rod insertion [Unknown]
  - Acute myocardial infarction [Unknown]
  - Coronary artery embolism [Unknown]
  - Depression [Unknown]
  - Depression [Unknown]
  - Low turnover osteopathy [Unknown]
  - Foot fracture [Unknown]
  - Foot fracture [Unknown]
  - Upper limb fracture [Unknown]
  - Type 2 diabetes mellitus [Unknown]
  - Essential hypertension [Unknown]
  - Osteopenia [Unknown]
  - Prothrombin time prolonged [Recovered/Resolved]
  - Anaemia postoperative [Unknown]
  - Device dislocation [Unknown]
  - Coronary artery disease [Unknown]
  - Carotid artery stent insertion [Unknown]
  - Thrombectomy [Unknown]
  - Hypokalaemia [Unknown]
  - Thrombocytopenia [Unknown]
  - Intervertebral disc compression [Unknown]
  - Dyslipidaemia [Unknown]
  - Scoliosis [Unknown]
  - Cardiac myxoma [Unknown]
  - Fall [Unknown]
  - Haemothorax [Unknown]
  - Cardiac valve fibroelastoma [Unknown]
  - Coronary artery stenosis [Unknown]
  - Adverse event [Recovered/Resolved]
  - Colon adenoma [Unknown]
  - Mammogram abnormal [Unknown]
  - Mitral valve incompetence [Unknown]
  - Hypergammaglobulinaemia benign monoclonal [Unknown]
  - Bone lesion [Unknown]
  - Spinal osteoarthritis [Unknown]
  - Diverticulum [Unknown]
  - Fall [Unknown]
  - Oedema [Unknown]
  - Blood pressure decreased [Unknown]
  - Musculoskeletal pain [Unknown]
  - Musculoskeletal chest pain [Unknown]
  - Gastrooesophageal reflux disease [Unknown]
